FAERS Safety Report 4370302-6 (Version None)
Quarter: 2004Q2

REPORT INFORMATION
  Report Type: 
  Country: None (occurrence: None)
  Receive Date: 20040603
  Receipt Date: 20040305
  Transmission Date: 20050107
  Serious: Yes (Other)
  Sender: FDA-Public Use
  Company Number: US-BRISTOL-MYERS SQUIBB COMPANY-12526117

PATIENT
  Age: 2 Year
  Sex: Female
  Weight: 12 kg

DRUGS (1)
  1. ABILIFY [Suspect]
     Indication: ACCIDENTAL EXPOSURE
     Route: 048

REACTIONS (3)
  - ACCIDENTAL EXPOSURE [None]
  - FATIGUE [None]
  - MEDICATION ERROR [None]
